FAERS Safety Report 17641821 (Version 2)
Quarter: 2020Q2

REPORT INFORMATION
  Report Type: Spontaneous
  Country: US (occurrence: US)
  Receive Date: 20200408
  Receipt Date: 20200413
  Transmission Date: 20200713
  Serious: Yes (Hospitalization)
  Sender: FDA-Public Use
  Company Number: US-IPSEN BIOPHARMACEUTICALS, INC.-2020-06797

PATIENT
  Age: 4 Year
  Sex: Female
  Weight: 13.7 kg

DRUGS (7)
  1. NORDITROPIN [Concomitant]
     Active Substance: SOMATROPIN
  2. SYNTHROID [Concomitant]
     Active Substance: LEVOTHYROXINE SODIUM
  3. QVAR [Concomitant]
     Active Substance: BECLOMETHASONE DIPROPIONATE
  4. DESMOPRESSIN [Concomitant]
     Active Substance: DESMOPRESSIN
  5. ALBUTEIN [Concomitant]
     Active Substance: ALBUMIN HUMAN
  6. INCRELEX [Suspect]
     Active Substance: MECASERMIN
     Indication: BONE DEVELOPMENT ABNORMAL
     Route: 058
     Dates: start: 20180622
  7. INCRELEX [Suspect]
     Active Substance: MECASERMIN
     Indication: OFF LABEL USE

REACTIONS (2)
  - Hypophagia [Recovered/Resolved]
  - Off label use [Unknown]

NARRATIVE: CASE EVENT DATE: 20200325
